FAERS Safety Report 23880837 (Version 1)
Quarter: 2024Q2

REPORT INFORMATION
  Report Type: Spontaneous
  Country: US (occurrence: US)
  Receive Date: 20240521
  Receipt Date: 20240521
  Transmission Date: 20240715
  Serious: No
  Sender: FDA-Public Use
  Company Number: US-TEVA-VS-3193782

PATIENT
  Sex: Male

DRUGS (1)
  1. DEXTROAMPHETAMINE SACCHARATE, AMPHETAMINE ASPARTATE MONOHYDRATE, DEXTR [Suspect]
     Active Substance: AMPHETAMINE ASPARTATE MONOHYDRATE\AMPHETAMINE SULFATE\DEXTROAMPHETAMINE SACCHARATE\DEXTROAMPHETAMINE
     Indication: Attention deficit hyperactivity disorder
     Route: 065
     Dates: start: 2024

REACTIONS (7)
  - Depression [Unknown]
  - Fatigue [Unknown]
  - Lethargy [Unknown]
  - Anxiety [Unknown]
  - Disturbance in attention [Unknown]
  - Drug ineffective [Unknown]
  - Negative thoughts [Unknown]

NARRATIVE: CASE EVENT DATE: 20240101
